FAERS Safety Report 18947339 (Version 1)
Quarter: 2021Q1

REPORT INFORMATION
  Report Type: Other
  Country: PT (occurrence: PT)
  Receive Date: 20210227
  Receipt Date: 20210227
  Transmission Date: 20210420
  Serious: Yes (Other)
  Sender: FDA-Public Use
  Company Number: PT-ROCHE-2776980

PATIENT

DRUGS (3)
  1. TRASTUZUMAB. [Suspect]
     Active Substance: TRASTUZUMAB
     Indication: HER2 POSITIVE BREAST CANCER
     Route: 065
  2. TRASTUZUMAB. [Suspect]
     Active Substance: TRASTUZUMAB
     Indication: ADJUVANT THERAPY
     Route: 065
  3. TRASTUZUMAB. [Suspect]
     Active Substance: TRASTUZUMAB
     Indication: NEOADJUVANT THERAPY
     Route: 065

REACTIONS (2)
  - Disease recurrence [Unknown]
  - Metastases to central nervous system [Recovered/Resolved]
